FAERS Safety Report 10189221 (Version 1)
Quarter: 2014Q2

REPORT INFORMATION
  Report Type: Spontaneous
  Country: DE (occurrence: None)
  Receive Date: 20140520
  Receipt Date: 20140520
  Transmission Date: 20141212
  Serious: Yes (Other)
  Sender: FDA-Public Use
  Company Number: 2014-DE-006167

PATIENT
  Age: 42 Year
  Sex: Male

DRUGS (2)
  1. XYREM (SODIUM OXYBATE) ORAL SOLUTION, 500 MG/ML [Suspect]
     Indication: PRODUCT USED FOR UNKNOWN INDICATION
     Route: 048
     Dates: start: 201405
  2. ALCOHOL [Suspect]
     Route: 048

REACTIONS (5)
  - Tachycardia [None]
  - Suicide attempt [None]
  - Intentional overdose [None]
  - Aggression [None]
  - Exposure via ingestion [None]
